FAERS Safety Report 22325544 (Version 2)
Quarter: 2023Q2

REPORT INFORMATION
  Report Type: Spontaneous
  Country: FR (occurrence: FR)
  Receive Date: 20230516
  Receipt Date: 20230605
  Transmission Date: 20230721
  Serious: Yes (Other)
  Sender: FDA-Public Use
  Company Number: FR-002147023-NVSC2023FR108724

PATIENT
  Age: 78 Year
  Sex: Female

DRUGS (8)
  1. OFLOXACIN [Suspect]
     Active Substance: OFLOXACIN
     Indication: Urinary tract infection
     Dosage: 200 MG, QD (1ST DOSE)
     Route: 048
     Dates: start: 20230405, end: 20230405
  2. OFLOXACIN [Suspect]
     Active Substance: OFLOXACIN
     Indication: Pyrexia
     Dosage: 200 MG, BID (2ND AND 3RD DOSE)
     Route: 065
     Dates: start: 20230406, end: 20230406
  3. OFLOXACIN [Suspect]
     Active Substance: OFLOXACIN
     Dosage: 200 MG, QD (4TH DOSE)
     Route: 048
     Dates: start: 20230407, end: 20230407
  4. OFLOXACIN [Suspect]
     Active Substance: OFLOXACIN
     Dosage: 200 MG, QD (5TH DOSE)
     Route: 048
     Dates: start: 20230408, end: 20230408
  5. OFLOXACIN [Suspect]
     Active Substance: OFLOXACIN
     Dosage: 200 MG, BID (6TH AND 7TH DOSE)
     Route: 048
     Dates: start: 20230409, end: 20230409
  6. OFLOXACIN [Suspect]
     Active Substance: OFLOXACIN
     Dosage: 200 MG, BID (8TH DOSE)
     Route: 048
     Dates: start: 20230410, end: 20230410
  7. SACCHAROMYCES CEREVISIAE [Suspect]
     Active Substance: SACCHAROMYCES CEREVISIAE
     Indication: Prophylaxis against diarrhoea
     Dosage: UNK
     Route: 065
     Dates: start: 20230405
  8. VITAMIN D [Concomitant]
     Active Substance: VITAMIN D NOS
     Indication: Product used for unknown indication
     Dosage: UNK
     Route: 065

REACTIONS (21)
  - Mitral valve incompetence [Unknown]
  - Dyspnoea [Recovering/Resolving]
  - Dizziness [Recovering/Resolving]
  - Enterococcal infection [Unknown]
  - Malaise [Recovered/Resolved]
  - Feeling abnormal [Not Recovered/Not Resolved]
  - Blood pressure increased [Not Recovered/Not Resolved]
  - Autonomic nervous system imbalance [Not Recovered/Not Resolved]
  - Condition aggravated [Not Recovered/Not Resolved]
  - Weight decreased [Recovered/Resolved]
  - Burning sensation [Not Recovered/Not Resolved]
  - Extrasystoles [Unknown]
  - Blood pressure fluctuation [Unknown]
  - Palpitations [Recovering/Resolving]
  - Abdominal discomfort [Not Recovered/Not Resolved]
  - Paraesthesia [Not Recovered/Not Resolved]
  - Heart rate increased [Not Recovered/Not Resolved]
  - Diarrhoea [Not Recovered/Not Resolved]
  - Blood pressure decreased [Recovering/Resolving]
  - Vertigo [Unknown]
  - Gait disturbance [Not Recovered/Not Resolved]

NARRATIVE: CASE EVENT DATE: 20230405
